FAERS Safety Report 4891167-X (Version None)
Quarter: 2006Q1

REPORT INFORMATION
  Report Type: 
  Country: None (occurrence: None)
  Receive Date: 20060125
  Receipt Date: 20051223
  Transmission Date: 20060701
  Serious: Yes (Other)
  Sender: FDA-Public Use
  Company Number: US-GLAXOSMITHKLINE-A0586930A

PATIENT
  Age: 53 Year
  Sex: Female
  Weight: 53.6 kg

DRUGS (2)
  1. REQUIP [Suspect]
     Indication: RESTLESS LEGS SYNDROME
     Dosage: 1MG UNKNOWN
     Route: 048
     Dates: end: 20051101
  2. NO CONCURRENT MEDICATION [Concomitant]

REACTIONS (10)
  - ANXIETY [None]
  - DYSKINESIA [None]
  - HYPERTENSION [None]
  - INSOMNIA [None]
  - MUCOSAL ULCERATION [None]
  - ORAL MUCOSAL EXFOLIATION [None]
  - PRURITUS [None]
  - SKIN ULCER [None]
  - SUPRAVENTRICULAR TACHYCARDIA [None]
  - SWELLING [None]
